FAERS Safety Report 5114787-6 (Version None)
Quarter: 2006Q3

REPORT INFORMATION
  Report Type: 
  Country: None (occurrence: None)
  Receive Date: 20060926
  Receipt Date: 20060913
  Transmission Date: 20061208
  Serious: Yes (Hospitalization, Other)
  Sender: FDA-Public Use
  Company Number: US-GILEAD-2006-0010229

PATIENT
  Sex: Male

DRUGS (10)
  1. VIREAD [Suspect]
     Indication: ACQUIRED IMMUNODEFICIENCY SYNDROME
     Route: 048
     Dates: start: 20030601, end: 20060731
  2. REYATAZ [Concomitant]
     Indication: ACQUIRED IMMUNODEFICIENCY SYNDROME
     Route: 048
  3. NORVIR [Concomitant]
     Indication: ACQUIRED IMMUNODEFICIENCY SYNDROME
     Route: 048
  4. VIRAMUNE [Concomitant]
     Indication: ACQUIRED IMMUNODEFICIENCY SYNDROME
     Route: 048
  5. ZANAFLEX [Concomitant]
     Indication: MUSCLE SPASTICITY
     Route: 048
     Dates: start: 20000101
  6. PROZAC [Concomitant]
     Indication: DEPRESSION
     Route: 048
     Dates: start: 20010301
  7. LIPITOR [Concomitant]
     Indication: HYPERCHOLESTEROLAEMIA
     Route: 048
     Dates: start: 20030101
  8. DETROL LA [Concomitant]
     Indication: NEUROGENIC BLADDER
     Route: 048
  9. COREG [Concomitant]
     Indication: CARDIOMYOPATHY
     Route: 048
  10. FLORINEF [Concomitant]
     Route: 048

REACTIONS (2)
  - NEPHROLITHIASIS [None]
  - URINARY TRACT INFECTION [None]
